FAERS Safety Report 24120326 (Version 1)
Quarter: 2024Q3

REPORT INFORMATION
  Report Type: Spontaneous
  Country: US (occurrence: None)
  Receive Date: 20240718
  Receipt Date: 20240718
  Transmission Date: 20241017
  Serious: No
  Sender: Public
  Company Number: None

PATIENT
  Age: 63 Year
  Sex: Female
  Weight: 81.65 kg

DRUGS (1)
  1. KLISYRI [Suspect]
     Active Substance: TIRBANIBULIN
     Indication: Skin cancer
     Dosage: OTHER QUANTITY : 5 ENVELOPES OF 1 DOSE EACH;?FREQUENCY : AT BEDTIME;?
     Route: 061
     Dates: start: 20240530, end: 20240604

REACTIONS (3)
  - Application site rash [None]
  - Application site abscess [None]
  - Application site pruritus [None]

NARRATIVE: CASE EVENT DATE: 20240531
